FAERS Safety Report 5716410-6 (Version None)
Quarter: 2008Q2

REPORT INFORMATION
  Report Type: 
  Country: None (occurrence: None)
  Receive Date: 20080422
  Receipt Date: 20080411
  Transmission Date: 20081010
  Serious: Yes (Other)
  Sender: FDA-Public Use
  Company Number: 2008AP000889

PATIENT
  Age: 72 Year
  Sex: Female

DRUGS (5)
  1. TICLOPIDINE HCL [Suspect]
     Dosage: 250 MG;TAB;QD;PO
     Route: 048
  2. GLICLAZIDE (GLICLAZIDE) [Concomitant]
  3. LOSARTAN POTASSIUM [Concomitant]
  4. LEVOTHYROXINE SODIUM [Concomitant]
  5. FUROSEMIDE [Concomitant]

REACTIONS (2)
  - PNEUMONIA [None]
  - WHITE BLOOD CELL COUNT DECREASED [None]
